FAERS Safety Report 23672522 (Version 1)
Quarter: 2024Q1

REPORT INFORMATION
  Report Type: Spontaneous
  Country: US (occurrence: US)
  Receive Date: 20240326
  Receipt Date: 20240326
  Transmission Date: 20240409
  Serious: Yes (Hospitalization, Other)
  Sender: FDA-Public Use
  Company Number: US-ALEMBIC PHARMACUETICALS LIMITED-2024SCAL000295

PATIENT

DRUGS (2)
  1. FLUOROURACIL [Suspect]
     Active Substance: FLUOROURACIL
     Indication: Oesophageal carcinoma
     Dosage: UNK
     Route: 065
  2. APIXABAN [Concomitant]
     Active Substance: APIXABAN
     Indication: Deep vein thrombosis
     Dosage: UNK
     Route: 065

REACTIONS (11)
  - Cardiogenic shock [Unknown]
  - Ejection fraction decreased [Unknown]
  - Tachycardia [Unknown]
  - Hypotension [Unknown]
  - Blood lactic acid increased [Unknown]
  - Toxicity to various agents [Unknown]
  - Angina pectoris [Unknown]
  - Electrocardiogram ST segment depression [Unknown]
  - Hyperhidrosis [Unknown]
  - Cardiac failure [Unknown]
  - Ventricular hypokinesia [Unknown]
